FAERS Safety Report 5636517-1 (Version None)
Quarter: 2008Q1

REPORT INFORMATION
  Report Type: 
  Country: None (occurrence: None)
  Receive Date: 20080219
  Receipt Date: 20080219
  Transmission Date: 20080703
  Serious: Yes (Other)
  Sender: FDA-Public Use
  Company Number: None

PATIENT
  Age: 49 Year
  Sex: Male
  Weight: 72.5755 kg

DRUGS (2)
  1. PROVIGIL [Suspect]
     Indication: NARCOLEPSY
     Dosage: 200 MG DAILY PO
     Route: 048
     Dates: start: 20060901, end: 20080218
  2. LIPITOR [Concomitant]

REACTIONS (3)
  - ACNE CONGLOBATA [None]
  - DISEASE RECURRENCE [None]
  - SKIN EXFOLIATION [None]
